FAERS Safety Report 10314703 (Version 1)
Quarter: 2014Q3

REPORT INFORMATION
  Report Type: Spontaneous
  Country: US (occurrence: None)
  Receive Date: 20140717
  Receipt Date: 20140717
  Transmission Date: 20150326
  Serious: Yes (Other)
  Sender: FDA-Public Use
  Company Number: 2014-US-004029

PATIENT
  Age: 47 Year
  Sex: Female

DRUGS (6)
  1. RITALIN [Concomitant]
     Active Substance: METHYLPHENIDATE HYDROCHLORIDE
  2. XANAX [Concomitant]
     Active Substance: ALPRAZOLAM
  3. ADDERALL [Suspect]
     Active Substance: AMPHETAMINE ASPARTATE\AMPHETAMINE SULFATE\DEXTROAMPHETAMINE SACCHARATE\DEXTROAMPHETAMINE SULFATE
     Indication: PRODUCT USED FOR UNKNOWN INDICATION
     Dates: end: 20140330
  4. CLONIDINE (CLONIDINE HYDROCHLORIDE) [Concomitant]
  5. XYREM [Suspect]
     Active Substance: SODIUM OXYBATE
     Indication: NARCOLEPSY
     Route: 048
     Dates: start: 201403, end: 2014
  6. XYREM [Suspect]
     Active Substance: SODIUM OXYBATE
     Indication: CATAPLEXY
     Route: 048
     Dates: start: 201403, end: 2014

REACTIONS (16)
  - Intervertebral disc degeneration [None]
  - Headache [None]
  - Spondylolisthesis [None]
  - Back pain [None]
  - Metastases to bone [None]
  - Intervertebral discitis [None]
  - Spinal column injury [None]
  - Irritability [None]
  - Joint stiffness [None]
  - Arthralgia [None]
  - Intervertebral disc protrusion [None]
  - Bone neoplasm [None]
  - Sciatica [None]
  - Condition aggravated [None]
  - Anxiety [None]
  - Somnolence [None]

NARRATIVE: CASE EVENT DATE: 2014
